FAERS Safety Report 24922579 (Version 1)
Quarter: 2025Q1

REPORT INFORMATION
  Report Type: Spontaneous
  Country: US (occurrence: US)
  Receive Date: 20250204
  Receipt Date: 20250204
  Transmission Date: 20250409
  Serious: No
  Sender: BAYER HEALTHCARE LLC
  Company Number: US-BAYER-2025A012976

PATIENT
  Age: 86 Year
  Sex: Male

DRUGS (5)
  1. MIRALAX [Suspect]
     Active Substance: POLYETHYLENE GLYCOL 3350
     Indication: Product used for unknown indication
     Route: 048
     Dates: end: 20250126
  2. COREG [Concomitant]
     Active Substance: CARVEDILOL
  3. GABAPENTIN [Concomitant]
     Active Substance: GABAPENTIN
  4. FINASTERIDE [Concomitant]
     Active Substance: FINASTERIDE
  5. LIPITOR [Concomitant]
     Active Substance: ATORVASTATIN CALCIUM

REACTIONS (1)
  - Product use issue [Unknown]
